FAERS Safety Report 23587370 (Version 1)
Quarter: 2024Q1

REPORT INFORMATION
  Report Type: Spontaneous
  Country: US (occurrence: US)
  Receive Date: 20240301
  Receipt Date: 20240301
  Transmission Date: 20240410
  Serious: No
  Sender: FDA-Public Use
  Company Number: US-DRL-USA-SPO/USA/24/0003167

PATIENT
  Age: 18 Year
  Sex: Male
  Weight: 44 kg

DRUGS (6)
  1. SAPROPTERIN DIHYDROCHLORIDE [Suspect]
     Active Substance: SAPROPTERIN DIHYDROCHLORIDE
     Indication: Phenylketonuria
     Dosage: 14 TABLETS BY MOUTH, DAILY
     Route: 048
  2. VITAMIN B COMPLEX TABLET [Concomitant]
     Indication: Product used for unknown indication
  3. TRETINOIN 0.01 GEL [Concomitant]
     Indication: Product used for unknown indication
  4. MINOCYCLINE ER 90 MG CAP 24H [Concomitant]
     Indication: Product used for unknown indication
  5. ERYTHROMYCIN-BENZOYL PEROXIDE [Concomitant]
     Active Substance: BENZOYL PEROXIDE\ERYTHROMYCIN
     Indication: Product used for unknown indication
  6. VYVANSE 20 MG TAB CHEW [Concomitant]
     Indication: Product used for unknown indication

REACTIONS (2)
  - Epistaxis [Unknown]
  - Inappropriate schedule of product administration [Unknown]
